FAERS Safety Report 7652122-X (Version None)
Quarter: 2011Q3

REPORT INFORMATION
  Report Type: 
  Country: None (occurrence: None)
  Receive Date: 20110803
  Receipt Date: 20110721
  Transmission Date: 20111222
  Serious: Yes (Other)
  Sender: FDA-Public Use
  Company Number: US-JNJFOC-20110711533

PATIENT
  Sex: Female

DRUGS (1)
  1. NEOSPORIN MAXIMUM STRENGTH CREAM [Suspect]
     Indication: ANTIBIOTIC PROPHYLAXIS
     Dosage: ^ENOUGH TO COVER BREASTS^ ONCE
     Route: 061
     Dates: start: 20110719, end: 20110719

REACTIONS (6)
  - APPLICATION SITE PRURITUS [None]
  - BURNING SENSATION [None]
  - URTICARIA [None]
  - IMPAIRED WORK ABILITY [None]
  - DERMATITIS [None]
  - APPLICATION SITE ERYTHEMA [None]
